FAERS Safety Report 23844739 (Version 6)
Quarter: 2024Q3

REPORT INFORMATION
  Report Type: Spontaneous
  Country: CA (occurrence: CA)
  Receive Date: 20240511
  Receipt Date: 20240807
  Transmission Date: 20241016
  Serious: Yes (Hospitalization, Other)
  Sender: CELLTRION
  Company Number: CA-PFIZER INC-202400015071

PATIENT

DRUGS (6)
  1. INFLECTRA [Suspect]
     Active Substance: INFLIXIMAB-DYYB
     Indication: Crohn^s disease
     Dosage: 5 MG/KG, HOSPITAL START W 0 W 2 10MG/KG 27DEC2023 W 6 WEEKS
     Route: 042
     Dates: start: 20231220
  2. INFLECTRA [Suspect]
     Active Substance: INFLIXIMAB-DYYB
     Dosage: 5 MG/KG, HOSPITAL START W 0 W 2 10MG/KG 27DEC2023 W 6 WEEKS
     Route: 042
     Dates: start: 20231227
  3. INFLECTRA [Suspect]
     Active Substance: INFLIXIMAB-DYYB
     Dosage: 10 MG/KG, INDUCTION WEEK 5 THEN EVERY 8 WEEKS
     Route: 042
     Dates: start: 20240124
  4. INFLECTRA [Suspect]
     Active Substance: INFLIXIMAB-DYYB
     Dosage: 5 MG/KG, HOSPITAL START W 0 W 2 10MG/KG 27DEC2023 W 6 WEEKS
     Route: 042
     Dates: start: 20240320
  5. INFLECTRA [Suspect]
     Active Substance: INFLIXIMAB-DYYB
     Dosage: 10 MG/KG, INDUCTION WEEK 5 THEN EVERY 8 WEEKS (490MG, 10 WEEKS AND 6 DAYS)
     Route: 042
     Dates: start: 20240604
  6. INFLECTRA [Suspect]
     Active Substance: INFLIXIMAB-DYYB
     Dosage: 490 MG, EVERY 8 WEEKS (10 MG/KG, INDUCTION WEEK 5 THEN EVERY 8 WEEKS)
     Route: 042
     Dates: start: 20240730

REACTIONS (6)
  - Ileectomy [Recovered/Resolved]
  - Intestinal obstruction [Recovering/Resolving]
  - Lymphoma [Unknown]
  - Off label use [Unknown]
  - Inappropriate schedule of product administration [Unknown]
  - Back pain [Not Recovered/Not Resolved]

NARRATIVE: CASE EVENT DATE: 20240101
